FAERS Safety Report 5233064-6 (Version None)
Quarter: 2007Q1

REPORT INFORMATION
  Report Type: 
  Country: None (occurrence: None)
  Receive Date: 20061204
  Receipt Date: 20060928
  Transmission Date: 20070707
  Serious: No
  Sender: FDA-Public Use
  Company Number: 2006-BP-11438BP

PATIENT
  Age: 85 Year
  Sex: Female
  Weight: 48.99 kg

DRUGS (16)
  1. SPIRIVA [Suspect]
     Indication: CHRONIC OBSTRUCTIVE PULMONARY DISEASE
     Dosage: 18 MCG (18 MCG,1 IN 1 D),IH
     Dates: start: 20060901
  2. COUMADIN [Concomitant]
  3. FUROSEMIDE [Concomitant]
  4. AMARYL [Concomitant]
  5. CARTIA XL (ACETYLSALICYLIC ACID) [Concomitant]
  6. ALTACE [Concomitant]
  7. DIGOXIN [Concomitant]
  8. POTASSIUM CHLORIDE [Concomitant]
  9. RHYTHMOL (ALL OTHER THERAPEUTIC PRODUCTS) [Concomitant]
  10. METOPROLOL TARTRATE [Concomitant]
  11. PROTONIX [Concomitant]
  12. LUMIGAN DROPS (BIMATOPROST) [Concomitant]
  13. INSULIN [Concomitant]
  14. CALCIUM CARBONATE (CALCIUM CARBONATE) [Concomitant]
  15. SINGULAIR [Concomitant]
  16. ALBUTEROL [Concomitant]

REACTIONS (2)
  - CONSTIPATION [None]
  - HAEMORRHOIDAL HAEMORRHAGE [None]
